FAERS Safety Report 4813286-6 (Version None)
Quarter: 2005Q4

REPORT INFORMATION
  Report Type: 
  Country: None (occurrence: None)
  Receive Date: 20051028
  Receipt Date: 20050422
  Transmission Date: 20060501
  Serious: No
  Sender: FDA-Public Use
  Company Number: US-GLAXOSMITHKLINE-A0555397A

PATIENT
  Age: 64 Year
  Sex: Male

DRUGS (3)
  1. ADVAIR DISKUS 100/50 [Suspect]
     Indication: BRONCHITIS
     Dosage: 1PUFF TWICE PER DAY
     Route: 055
     Dates: start: 20050113, end: 20050401
  2. SPIRIVA [Concomitant]
  3. LISINOPRIL [Concomitant]

REACTIONS (4)
  - ARTHRALGIA [None]
  - INSOMNIA [None]
  - MYALGIA [None]
  - SHOULDER PAIN [None]
